FAERS Safety Report 21962745 (Version 1)
Quarter: 2023Q1

REPORT INFORMATION
  Report Type: Other
  Country: None (occurrence: DK)
  Receive Date: 20230207
  Receipt Date: 20230207
  Transmission Date: 20230417
  Serious: Yes (Life-Threatening, Hospitalization, Other)
  Sender: FDA-Public Use
  Company Number: DK-Spectra Medical Devices, LLC-2137620

PATIENT
  Age: 82 Year
  Sex: Female
  Weight: 70 kg

DRUGS (1)
  1. LIDOCAINE HYDROCHLORIDE ANHYDROUS [Suspect]
     Active Substance: LIDOCAINE HYDROCHLORIDE ANHYDROUS
     Indication: Product used for unknown indication
     Route: 058

REACTIONS (4)
  - Atrioventricular block first degree [Recovered/Resolved]
  - Altered state of consciousness [Recovered/Resolved]
  - Local anaesthetic systemic toxicity [Recovered/Resolved]
  - Overdose [Recovered/Resolved]
